FAERS Safety Report 18988334 (Version 1)
Quarter: 2021Q1

REPORT INFORMATION
  Report Type: Spontaneous
  Country: ES (occurrence: ES)
  Receive Date: 20210309
  Receipt Date: 20210309
  Transmission Date: 20210420
  Serious: Yes (Hospitalization, Other)
  Sender: FDA-Public Use
  Company Number: NVSC2021ES049305

PATIENT
  Age: 33 Year
  Sex: Male
  Weight: 70 kg

DRUGS (3)
  1. PANTOPRAZOL NORMON [Concomitant]
     Indication: PRODUCT USED FOR UNKNOWN INDICATION
     Dosage: UNK
     Route: 065
  2. ERELZI [Suspect]
     Active Substance: ETANERCEPT-SZZS
     Indication: AXIAL SPONDYLOARTHRITIS
     Dosage: 50 MG, QW (50 MG SEMANAL)
     Route: 058
     Dates: start: 202004, end: 202009
  3. ARTILOG [Concomitant]
     Active Substance: CELECOXIB
     Indication: PRODUCT USED FOR UNKNOWN INDICATION
     Dosage: 1 C/24H
     Route: 065
     Dates: start: 2015

REACTIONS (2)
  - Myelitis [Recovered/Resolved]
  - Demyelination [Recovered/Resolved]

NARRATIVE: CASE EVENT DATE: 202007
